FAERS Safety Report 7313902-3 (Version None)
Quarter: 2011Q1

REPORT INFORMATION
  Report Type: 
  Country: None (occurrence: None)
  Receive Date: 20110225
  Receipt Date: 20110216
  Transmission Date: 20110831
  Serious: Yes (Hospitalization)
  Sender: FDA-Public Use
  Company Number: US-AMGEN-USASP2011009353

PATIENT
  Age: 58 Year
  Sex: Female

DRUGS (2)
  1. ENBREL [Suspect]
     Indication: RHEUMATOID ARTHRITIS
     Dates: start: 20051102
  2. PLAQUENIL [Concomitant]
     Dates: start: 20110101

REACTIONS (2)
  - RHEUMATOID ARTHRITIS [None]
  - SPINAL FUSION SURGERY [None]
